FAERS Safety Report 11242173 (Version 1)
Quarter: 2015Q3

REPORT INFORMATION
  Report Type: Spontaneous
  Country: US (occurrence: US)
  Receive Date: 20150707
  Receipt Date: 20150707
  Transmission Date: 20151125
  Serious: No
  Sender: FDA-Public Use
  Company Number: US-BRISTOL-MYERS SQUIBB COMPANY-BMS-2015-043941

PATIENT
  Age: 67 Year
  Sex: Female

DRUGS (3)
  1. EFFEXOR [Concomitant]
     Active Substance: VENLAFAXINE HYDROCHLORIDE
     Indication: MAJOR DEPRESSION
     Route: 065
  2. ABILIFY [Suspect]
     Active Substance: ARIPIPRAZOLE
     Indication: MAJOR DEPRESSION
     Dosage: 2 MG, UNK
     Route: 048
     Dates: start: 20150618, end: 20150622
  3. LORAZEPAM. [Concomitant]
     Active Substance: LORAZEPAM
     Indication: ANXIETY
     Dosage: 1 TAB, UNK
     Route: 065
     Dates: start: 20150618

REACTIONS (3)
  - Asthenia [Unknown]
  - Diarrhoea [Recovered/Resolved]
  - Off label use [Recovered/Resolved]
